FAERS Safety Report 5391389-8 (Version None)
Quarter: 2007Q3

REPORT INFORMATION
  Report Type: 
  Country: None (occurrence: None)
  Receive Date: 20070719
  Receipt Date: 20070709
  Transmission Date: 20080115
  Serious: Yes (Hospitalization)
  Sender: FDA-Public Use
  Company Number: US-KINGPHARMUSA00001-K200700869

PATIENT

DRUGS (10)
  1. ALTACE [Suspect]
     Dosage: 10 MG, QD
     Route: 048
     Dates: start: 20060901
  2. NEXIUM [Suspect]
     Dosage: 20 MG, QD
     Route: 048
     Dates: start: 20061127
  3. CARBAMAZEPINE [Suspect]
     Dosage: 600 MG, QD
     Route: 048
     Dates: start: 20061127, end: 20061127
  4. CARBAMAZEPINE [Suspect]
     Dosage: 1100 MG, QD
     Route: 048
     Dates: start: 20061128, end: 20061128
  5. CARBAMAZEPINE [Suspect]
     Dosage: 200 MG, QD
     Route: 048
     Dates: start: 20061129, end: 20061129
  6. DISALUNIL [Suspect]
     Dosage: 50 MG, QD
     Route: 048
     Dates: start: 20060901, end: 20061128
  7. DISALUNIL [Suspect]
     Dosage: 25 MG, QD
     Route: 048
     Dates: start: 20061129, end: 20061130
  8. TRIMIPRAMINE MALEATE [Concomitant]
     Dosage: 50 MG, UNK
     Route: 048
     Dates: start: 20060901
  9. PROTAPHANE MC  /00030504/ [Concomitant]
     Dosage: 16 IU, UNK
     Route: 058
     Dates: start: 20061127, end: 20061128
  10. INSULIN MC ACTRAPID [Concomitant]
     Dosage: 34 IU, UNK
     Route: 058

REACTIONS (6)
  - BLOOD POTASSIUM DECREASED [None]
  - DIZZINESS [None]
  - HYPONATRAEMIA [None]
  - NAUSEA [None]
  - UNEVALUABLE EVENT [None]
  - VOMITING [None]
